FAERS Safety Report 21484694 (Version 1)
Quarter: 2022Q4

REPORT INFORMATION
  Report Type: Spontaneous
  Country: US (occurrence: None)
  Receive Date: 20221019
  Receipt Date: 20221019
  Transmission Date: 20230112
  Serious: No
  Sender: FDA-Public Use
  Company Number: None

PATIENT
  Age: 64 Year
  Sex: Female

DRUGS (15)
  1. KISQALI [Suspect]
     Active Substance: RIBOCICLIB
     Indication: Breast cancer female
     Dosage: OTHER FREQUENCY : 21D ON 7D OFF;?
     Route: 048
     Dates: start: 20220521, end: 20221019
  2. AMLODIPINE [Concomitant]
     Active Substance: AMLODIPINE BESYLATE
  3. ATORVASTATIN [Concomitant]
  4. BENADRYL [Concomitant]
  5. CYCLOBENZAPRINE [Concomitant]
  6. HYOSCYAMINE [Concomitant]
     Active Substance: HYOSCYAMINE
  7. LETROZOLE [Concomitant]
  8. LISINOPRIL [Concomitant]
  9. METHOCARBAMOL [Concomitant]
     Active Substance: METHOCARBAMOL
  10. MIRTAZAPINE [Concomitant]
  11. NORCO [Concomitant]
     Active Substance: ACETAMINOPHEN\HYDROCODONE BITARTRATE
  12. NORMAL SALINE [Concomitant]
  13. OMEPRAZOLE [Concomitant]
  14. VENTOLIN [Concomitant]
     Active Substance: ALBUTEROL SULFATE
  15. ZOMETA [Concomitant]

REACTIONS (1)
  - Hepatic enzyme increased [None]
